FAERS Safety Report 9413558 (Version 2)
Quarter: 2013Q3

REPORT INFORMATION
  Report Type: Spontaneous
  Country: FR (occurrence: FR)
  Receive Date: 20130711
  Receipt Date: 20130814
  Transmission Date: 20140515
  Serious: Yes (Hospitalization)
  Sender: FDA-Public Use
  Company Number: 222243

PATIENT
  Age: 72 Year
  Sex: Female

DRUGS (15)
  1. INNOHEP (TINZAPARIN SODIUM) [Suspect]
     Indication: PULMONARY EMBOLISM
     Route: 058
     Dates: start: 20130421
  2. MORPHINE [Suspect]
     Indication: CANCER PAIN
     Route: 042
     Dates: start: 20130122, end: 20130428
  3. OXYCONTIN LP [Suspect]
     Indication: ANXIETY
     Route: 048
     Dates: start: 20130418
  4. OXYNORM [Suspect]
     Indication: CANCER PAIN
     Dosage: DOSAGE ADMINISTERED AS REQUIRED.  90 MG
     Route: 048
     Dates: start: 201303
  5. PARACETAMOL [Suspect]
     Indication: PAIN
     Dosage: DOSAGE ADMINISTERED AS REQUIRED-4 HOURLY.  6 GM
     Route: 048
     Dates: start: 201302, end: 20130421
  6. ACUPAN [Suspect]
     Indication: PAIN
     Route: 042
     Dates: start: 20130422, end: 20130428
  7. DOLIPRANE (PARACETAMOL) [Suspect]
     Indication: PAIN
     Route: 048
     Dates: start: 20130422, end: 20130428
  8. PROFENID [Suspect]
     Indication: PAIN
     Route: 048
     Dates: start: 20130422, end: 20130428
  9. OXALIPLATINE [Suspect]
     Indication: CHOLANGIOCARCINOMA
     Route: 042
     Dates: start: 20130404, end: 20130404
  10. GEMCITABINE (GEMCITABINE) [Suspect]
     Indication: CHOLANGIOCARCINOMA
     Route: 042
     Dates: start: 02030404, end: 20130404
  11. INEXIUM (ESOMEPRAZOLE MAGNESIUM)(40 MG) [Concomitant]
  12. STRESAM (ETIFOXINE) [Concomitant]
  13. LERCAN (LERCANIDIPINE HYDROCHLORIDE) [Concomitant]
  14. LERCAN (LERCANIDIPINE HYDROCHLORIDE) [Concomitant]
  15. OMEPRAZOLE (OMEPRAZOLE) [Concomitant]

REACTIONS (13)
  - Device related infection [None]
  - Chest pain [None]
  - Abdominal pain [None]
  - Abdominal pain upper [None]
  - Abdominal pain upper [None]
  - Inflammation [None]
  - Cholestasis [None]
  - Hepatitis acute [None]
  - Hepatocellular injury [None]
  - Cholangiocarcinoma [None]
  - Malignant neoplasm progression [None]
  - Metastases to liver [None]
  - Musculoskeletal pain [None]
